FAERS Safety Report 4595190-4 (Version None)
Quarter: 2005Q1

REPORT INFORMATION
  Report Type: 
  Country: None (occurrence: None)
  Receive Date: 20050224
  Receipt Date: 20050211
  Transmission Date: 20050727
  Serious: Yes (Other)
  Sender: FDA-Public Use
  Company Number: 2005030671

PATIENT
  Sex: Female
  Weight: 79.3795 kg

DRUGS (1)
  1. CELEBREX [Suspect]
     Indication: ARTHRITIS
     Dosage: ORAL
     Route: 048

REACTIONS (5)
  - DIFFICULTY IN WALKING [None]
  - KNEE ARTHROPLASTY [None]
  - LYMPHOMA [None]
  - POST PROCEDURAL COMPLICATION [None]
  - WEIGHT DECREASED [None]
